FAERS Safety Report 6203413-0 (Version None)
Quarter: 2009Q2

REPORT INFORMATION
  Report Type: 
  Country: None (occurrence: None)
  Receive Date: 20090527
  Receipt Date: 20090518
  Transmission Date: 20091009
  Serious: Yes (Hospitalization)
  Sender: FDA-Public Use
  Company Number: US-ELI_LILLY_AND_COMPANY-US200903003995

PATIENT
  Sex: Female

DRUGS (6)
  1. HUMATROPE [Suspect]
     Indication: GROWTH HORMONE DEFICIENCY
     Dosage: 0.4 MG, DAILY (1/D)
     Dates: start: 20090217, end: 20090101
  2. HUMATROPE [Suspect]
     Dosage: 0.1 MG, DAILY (1/D)
     Dates: start: 20090101
  3. HUMATROPE [Suspect]
     Dosage: 0.2 MG, QOD
     Dates: start: 20090101
  4. ESTROGENS [Concomitant]
     Dosage: UNK, UNKNOWN
     Dates: end: 20090201
  5. PROGESTERONE [Concomitant]
     Dosage: UNK, UNKNOWN
  6. NYSTATIN [Concomitant]
     Indication: GASTROINTESTINAL INFECTION
     Dosage: UNK, UNKNOWN
     Dates: start: 20090101

REACTIONS (8)
  - BONE PAIN [None]
  - BURNING SENSATION [None]
  - GASTROINTESTINAL INFECTION [None]
  - JOINT STIFFNESS [None]
  - MENINGITIS [None]
  - MIGRAINE [None]
  - PAIN [None]
  - TERMINAL INSOMNIA [None]
